FAERS Safety Report 7553526-6 (Version None)
Quarter: 2011Q2

REPORT INFORMATION
  Report Type: 
  Country: None (occurrence: None)
  Receive Date: 20110617
  Receipt Date: 20110112
  Transmission Date: 20111010
  Serious: No
  Sender: FDA-Public Use
  Company Number: US-MYLANLABS-2010S1023662

PATIENT
  Age: 71 Year
  Sex: Female

DRUGS (7)
  1. CIMETIDINE [Suspect]
     Route: 048
     Dates: start: 20101123, end: 20101123
  2. CIMETIDINE [Suspect]
     Indication: GASTROOESOPHAGEAL REFLUX DISEASE
     Route: 048
     Dates: start: 20101123, end: 20101123
  3. VITAMIN TAB [Concomitant]
  4. CALCIUM CARBONATE [Concomitant]
  5. TYLENOL-500 [Concomitant]
  6. SYNTHROID [Concomitant]
  7. LISINOPRIL [Concomitant]

REACTIONS (4)
  - HYPERSENSITIVITY [None]
  - BLOOD PRESSURE INCREASED [None]
  - DYSPNOEA [None]
  - ERYTHEMA [None]
